FAERS Safety Report 10242828 (Version 1)
Quarter: 2014Q2

REPORT INFORMATION
  Report Type: Spontaneous
  Country: JP (occurrence: JP)
  Receive Date: 20140618
  Receipt Date: 20140618
  Transmission Date: 20141212
  Serious: Yes (Other)
  Sender: FDA-Public Use
  Company Number: JP-ACCORD-024267

PATIENT
  Age: 32 Year
  Sex: Male

DRUGS (3)
  1. ETOPOSIDE [Suspect]
     Indication: TESTICULAR GERM CELL CANCER
     Dosage: RECEIVED 4 CYCLES
  2. CISPLATIN [Suspect]
     Indication: TESTICULAR GERM CELL CANCER
     Dosage: RECEIVED 4 CYCLES
  3. BLEOMYCIN [Suspect]
     Indication: TESTICULAR GERM CELL CANCER
     Dosage: RECEIVED 4 CYCLES

REACTIONS (1)
  - Lung abscess [Recovered/Resolved]
